FAERS Safety Report 9013341 (Version 1)
Quarter: 2013Q1

REPORT INFORMATION
  Report Type: Spontaneous
  Country: DK (occurrence: GB)
  Receive Date: 20130114
  Receipt Date: 20130114
  Transmission Date: 20140127
  Serious: Yes (Hospitalization)
  Sender: FDA-Public Use
  Company Number: GB-FRI-1000041591

PATIENT
  Age: 65 Year
  Sex: Male

DRUGS (5)
  1. CITALOPRAM [Suspect]
     Indication: ANXIETY
     Dosage: 60 MG
     Route: 048
     Dates: start: 201003
  2. CITALOPRAM [Suspect]
     Indication: DEPRESSION
     Dosage: 40 MG
     Route: 048
  3. CITALOPRAM [Suspect]
     Dosage: 60 MG
     Route: 048
     Dates: end: 201212
  4. AMISULPRIDE [Concomitant]
  5. CLOZAPINE [Concomitant]

REACTIONS (5)
  - Fall [Unknown]
  - Malaise [Unknown]
  - Abdominal pain upper [Unknown]
  - Haematemesis [Recovering/Resolving]
  - Prescribed overdose [Unknown]
